FAERS Safety Report 9626917 (Version 2)
Quarter: 2013Q4

REPORT INFORMATION
  Report Type: Spontaneous
  Country: US (occurrence: US)
  Receive Date: 20131016
  Receipt Date: 20131016
  Transmission Date: 20140711
  Serious: Yes (Other)
  Sender: FDA-Public Use
  Company Number: US-JNJFOC-20130916792

PATIENT
  Age: 57 Year
  Sex: Male
  Weight: 112.49 kg

DRUGS (7)
  1. INVOKANA [Suspect]
     Indication: TYPE 2 DIABETES MELLITUS
     Route: 048
  2. INVOKANA [Suspect]
     Indication: TYPE 2 DIABETES MELLITUS
     Route: 048
     Dates: start: 20130617, end: 20130927
  3. TRADJENTA [Concomitant]
     Indication: TYPE 2 DIABETES MELLITUS
  4. GLIMEPIRIDE [Concomitant]
     Indication: TYPE 2 DIABETES MELLITUS
  5. METFORMIN ER [Concomitant]
     Indication: TYPE 2 DIABETES MELLITUS
  6. QUINAPRIL [Concomitant]
  7. ATORVASTATIN [Concomitant]

REACTIONS (4)
  - Acute myocardial infarction [Unknown]
  - Hypotension [Recovered/Resolved]
  - Hypovolaemia [Recovered/Resolved]
  - Presyncope [Recovered/Resolved]
